FAERS Safety Report 4637954-4 (Version None)
Quarter: 2005Q2

REPORT INFORMATION
  Report Type: 
  Country: None (occurrence: None)
  Receive Date: 20050325
  Receipt Date: 20401122
  Transmission Date: 20051028
  Serious: No
  Sender: FDA-Public Use
  Company Number: USA041184309

PATIENT
  Age: 78 Year
  Sex: Female
  Weight: 68 kg

DRUGS (16)
  1. FORTEO [Suspect]
     Indication: OSTEOPOROSIS
     Dosage: 20 UG/1 DAY
     Dates: start: 20041001
  2. THEO-24 (THEOPHYLLINE) [Concomitant]
  3. FLUTICASONE PROPIONATE W/ SALMETEROL [Concomitant]
  4. METHYLPREDNISOLONE [Concomitant]
  5. VIT C TAB [Concomitant]
  6. CALCIUM CITRATE WITH VITAMIN D [Concomitant]
  7. OMEPRAZOLE [Concomitant]
  8. MULTIVITAMIN [Concomitant]
  9. FUROSEMIDE [Concomitant]
  10. POTASSIUM CHLORIDE [Concomitant]
  11. ISOSORBIDE [Concomitant]
  12. TYLENOL [Concomitant]
  13. ASACOL [Concomitant]
  14. ACETAMINOPHEN [Concomitant]
  15. EYE DROPS (TETRYZOLINE HYDROCHLORIDE) [Concomitant]
  16. . [Concomitant]

REACTIONS (2)
  - BLOOD CHOLESTEROL INCREASED [None]
  - DIZZINESS [None]
